FAERS Safety Report 8598256-7 (Version None)
Quarter: 2012Q3

REPORT INFORMATION
  Report Type: 
  Country: None (occurrence: None)
  Receive Date: 20120802
  Receipt Date: 20120720
  Transmission Date: 20120928
  Serious: Yes (Other)
  Sender: FDA-Public Use
  Company Number: AUR-APL-2012-03230

PATIENT
  Age: 38 Year
  Sex: Male
  Weight: 95.24 kg

DRUGS (18)
  1. MULTIVITAMIN [Concomitant]
  2. VENLAFAXINE HCL [Suspect]
     Indication: ANXIETY
     Dosage: 37.5 MG (37.5 MG, 1 IN 1 D), ORAL
     Route: 048
     Dates: start: 20110601, end: 20110622
  3. EFFEXOR XR [Suspect]
     Indication: IRRITABLE BOWEL SYNDROME
     Dosage: SEE IMAGE
     Route: 048
     Dates: start: 20030101
  4. EFFEXOR XR [Suspect]
     Indication: PANIC DISORDER
     Dosage: SEE IMAGE
     Route: 048
     Dates: start: 20030101
  5. EFFEXOR XR [Suspect]
     Indication: ANXIETY
     Dosage: SEE IMAGE
     Route: 048
     Dates: start: 20030101
  6. EFFEXOR XR [Suspect]
     Indication: DEPRESSION
     Dosage: SEE IMAGE
     Route: 048
     Dates: start: 20030101
  7. EFFEXOR XR [Suspect]
     Indication: IRRITABLE BOWEL SYNDROME
     Dosage: SEE IMAGE
     Route: 048
     Dates: start: 20071201
  8. EFFEXOR XR [Suspect]
     Indication: PANIC DISORDER
     Dosage: SEE IMAGE
     Route: 048
     Dates: start: 20071201
  9. EFFEXOR XR [Suspect]
     Indication: ANXIETY
     Dosage: SEE IMAGE
     Route: 048
     Dates: start: 20071201
  10. EFFEXOR XR [Suspect]
     Indication: DEPRESSION
     Dosage: SEE IMAGE
     Route: 048
     Dates: start: 20071201
  11. EFFEXOR XR [Suspect]
     Indication: IRRITABLE BOWEL SYNDROME
     Dosage: SEE IMAGE
     Route: 048
     Dates: start: 20080101
  12. EFFEXOR XR [Suspect]
     Indication: PANIC DISORDER
     Dosage: SEE IMAGE
     Route: 048
     Dates: start: 20080101
  13. EFFEXOR XR [Suspect]
     Indication: ANXIETY
     Dosage: SEE IMAGE
     Route: 048
     Dates: start: 20080101
  14. EFFEXOR XR [Suspect]
     Indication: DEPRESSION
     Dosage: SEE IMAGE
     Route: 048
     Dates: start: 20080101
  15. EFFEXOR XR [Suspect]
     Indication: IRRITABLE BOWEL SYNDROME
     Dosage: SEE IMAGE
     Route: 048
     Dates: start: 20120716
  16. EFFEXOR XR [Suspect]
     Indication: PANIC DISORDER
     Dosage: SEE IMAGE
     Route: 048
     Dates: start: 20120716
  17. EFFEXOR XR [Suspect]
     Indication: ANXIETY
     Dosage: SEE IMAGE
     Route: 048
     Dates: start: 20120716
  18. EFFEXOR XR [Suspect]
     Indication: DEPRESSION
     Dosage: SEE IMAGE
     Route: 048
     Dates: start: 20120716

REACTIONS (11)
  - CONDITION AGGRAVATED [None]
  - HOT FLUSH [None]
  - DIZZINESS [None]
  - DRUG INEFFECTIVE [None]
  - DRUG WITHDRAWAL SYNDROME [None]
  - ABNORMAL DREAMS [None]
  - PRODUCT SUBSTITUTION ISSUE [None]
  - FATIGUE [None]
  - ANXIETY [None]
  - DEPRESSION [None]
  - HEADACHE [None]
